FAERS Safety Report 6785763-2 (Version None)
Quarter: 2010Q2

REPORT INFORMATION
  Report Type: 
  Country: None (occurrence: None)
  Receive Date: 20100621
  Receipt Date: 20100621
  Transmission Date: 20101027
  Serious: Yes (Other)
  Sender: FDA-Public Use
  Company Number: None

PATIENT
  Age: 50 Year
  Sex: Female
  Weight: 45.3597 kg

DRUGS (1)
  1. VERSED [Suspect]
     Indication: DENTAL OPERATION
     Dates: start: 20100603, end: 20100603

REACTIONS (2)
  - NO ADVERSE EVENT [None]
  - PRODUCT QUALITY ISSUE [None]
